FAERS Safety Report 5714586-8 (Version None)
Quarter: 2008Q2

REPORT INFORMATION
  Report Type: 
  Country: None (occurrence: None)
  Receive Date: 20080423
  Receipt Date: 20080421
  Transmission Date: 20081010
  Serious: Yes (Hospitalization)
  Sender: FDA-Public Use
  Company Number: A0661395B

PATIENT
  Age: 70 Year
  Sex: Male
  Weight: 50 kg

DRUGS (4)
  1. ROSIGLITAZONE [Suspect]
     Dosage: 8MG PER DAY
     Route: 048
     Dates: start: 20070518, end: 20080123
  2. AMOBAN [Concomitant]
     Indication: INSOMNIA
     Route: 048
  3. TIMOPTIC [Concomitant]
     Route: 047
     Dates: start: 20070517
  4. ARICEPT [Concomitant]
     Dosage: 5MG PER DAY
     Route: 048
     Dates: start: 20060508

REACTIONS (5)
  - AGITATION [None]
  - COGNITIVE DISORDER [None]
  - DEMENTIA ALZHEIMER'S TYPE [None]
  - INSOMNIA [None]
  - PORIOMANIA [None]
